FAERS Safety Report 5386253-4 (Version None)
Quarter: 2007Q3

REPORT INFORMATION
  Report Type: 
  Country: None (occurrence: None)
  Receive Date: 20070713
  Receipt Date: 20070706
  Transmission Date: 20080115
  Serious: Yes (Other)
  Sender: FDA-Public Use
  Company Number: PHEH2007US01459

PATIENT
  Age: 70 Year
  Sex: Female
  Weight: 58.956 kg

DRUGS (3)
  1. ASPIRIN [Concomitant]
     Dosage: 81 MG, QD
  2. ASPIRIN [Concomitant]
     Dosage: 81 MG, QD
  3. ZELNORM [Suspect]
     Indication: IRRITABLE BOWEL SYNDROME
     Dosage: 6 MG, BID
     Route: 048
     Dates: start: 20061206, end: 20061207

REACTIONS (12)
  - ARTERIOGRAM CAROTID ABNORMAL [None]
  - BLOOD PRESSURE ABNORMAL [None]
  - CAROTID INTIMA-MEDIA THICKNESS INCREASED [None]
  - ELECTROCARDIOGRAM ABNORMAL [None]
  - HEART RATE IRREGULAR [None]
  - HEMIPARESIS [None]
  - MUSCLE FATIGUE [None]
  - MYOCARDIAL INFARCTION [None]
  - PEDAL PULSE DECREASED [None]
  - RADIAL PULSE ABNORMAL [None]
  - SENSATION OF PRESSURE [None]
  - VISION BLURRED [None]
